FAERS Safety Report 6523066-1 (Version None)
Quarter: 2009Q4

REPORT INFORMATION
  Report Type: 
  Country: None (occurrence: None)
  Receive Date: 20091230
  Receipt Date: 20091222
  Transmission Date: 20100525
  Serious: Yes (Other)
  Sender: FDA-Public Use
  Company Number: US-GILEAD-2009-0026204

PATIENT
  Age: 57 Year
  Sex: Male

DRUGS (5)
  1. TRUVADA [Suspect]
     Indication: HIV INFECTION
  2. PREZISTA [Suspect]
     Indication: HIV INFECTION
     Route: 048
  3. GS-9137 [Concomitant]
     Indication: HIV INFECTION
  4. RALTEGRAVIR [Concomitant]
     Indication: HIV INFECTION
  5. NORVIR [Concomitant]
     Indication: HIV INFECTION

REACTIONS (3)
  - BLOOD TRIGLYCERIDES INCREASED [None]
  - GLOMERULAR FILTRATION RATE DECREASED [None]
  - OVERDOSE [None]
